FAERS Safety Report 23705347 (Version 1)
Quarter: 2024Q2

REPORT INFORMATION
  Report Type: Spontaneous
  Country: US (occurrence: US)
  Receive Date: 20240404
  Receipt Date: 20240404
  Transmission Date: 20240716
  Serious: Yes (Hospitalization)
  Sender: FDA-Public Use
  Company Number: US-BRISTOL-MYERS SQUIBB COMPANY-2024-049407

PATIENT
  Age: 79 Year
  Sex: Male

DRUGS (2)
  1. SPRYCEL [Suspect]
     Active Substance: DASATINIB
     Indication: Chronic lymphocytic leukaemia
     Route: 048
     Dates: start: 201801
  2. SPRYCEL [Suspect]
     Active Substance: DASATINIB

REACTIONS (2)
  - Hospitalisation [Unknown]
  - Off label use [Unknown]
